FAERS Safety Report 6292936-4 (Version None)
Quarter: 2009Q3

REPORT INFORMATION
  Report Type: 
  Country: None (occurrence: None)
  Receive Date: 20090731
  Receipt Date: 20090720
  Transmission Date: 20100115
  Serious: Yes (Other)
  Sender: FDA-Public Use
  Company Number: US-PFIZER INC-2009246029

PATIENT
  Age: 23 Year
  Sex: Male

DRUGS (4)
  1. GEODON [Suspect]
     Dosage: FREQUENCY: 2X/DAY, EVERYDAY;
     Route: 048
  2. ALTACE [Concomitant]
     Dosage: UNK
     Route: 048
  3. SYNTHROID [Concomitant]
     Dosage: UNK
     Route: 048
  4. KLONOPIN [Concomitant]
     Dosage: UNK
     Route: 048

REACTIONS (7)
  - BLOOD PRESSURE INCREASED [None]
  - CONFUSIONAL STATE [None]
  - DEHYDRATION [None]
  - DISORIENTATION [None]
  - HEART RATE INCREASED [None]
  - MEMORY IMPAIRMENT [None]
  - SOMNOLENCE [None]
